FAERS Safety Report 25472457 (Version 1)
Quarter: 2025Q2

REPORT INFORMATION
  Report Type: Report from Study
  Country: QA (occurrence: QA)
  Receive Date: 20250624
  Receipt Date: 20250624
  Transmission Date: 20250717
  Serious: Yes (Other)
  Sender: MYLAN
  Company Number: QA-MYLANLABS-2025M1052909

PATIENT
  Age: 5 Decade

DRUGS (8)
  1. CLOZAPINE [Interacting]
     Active Substance: CLOZAPINE
     Indication: Product used for unknown indication
  2. CLOZAPINE [Interacting]
     Active Substance: CLOZAPINE
     Route: 065
  3. CLOZAPINE [Interacting]
     Active Substance: CLOZAPINE
     Route: 065
  4. CLOZAPINE [Interacting]
     Active Substance: CLOZAPINE
  5. COVID-19 VACCINE NOS [Interacting]
     Active Substance: COVID-19 VACCINE
     Indication: COVID-19 immunisation
  6. COVID-19 VACCINE NOS [Interacting]
     Active Substance: COVID-19 VACCINE
     Route: 065
  7. COVID-19 VACCINE NOS [Interacting]
     Active Substance: COVID-19 VACCINE
     Route: 065
  8. COVID-19 VACCINE NOS [Interacting]
     Active Substance: COVID-19 VACCINE

REACTIONS (2)
  - Vaccine interaction [Recovered/Resolved]
  - Neutropenia [Recovered/Resolved]
